FAERS Safety Report 24230976 (Version 2)
Quarter: 2024Q4

REPORT INFORMATION
  Report Type: Report from Study
  Country: US (occurrence: US)
  Receive Date: 20240821
  Receipt Date: 20241010
  Transmission Date: 20250115
  Serious: Yes (Life-Threatening, Hospitalization)
  Sender: JOHNSON AND JOHNSON
  Company Number: US-JNJFOC-20240811493

PATIENT
  Age: 70 Year
  Sex: Male

DRUGS (1)
  1. REMICADE [Suspect]
     Active Substance: INFLIXIMAB
     Indication: Psoriatic arthropathy
     Route: 041

REACTIONS (3)
  - Myocardial infarction [Unknown]
  - Nerve compression [Unknown]
  - Arthralgia [Unknown]

NARRATIVE: CASE EVENT DATE: 20230901
